FAERS Safety Report 15728346 (Version 3)
Quarter: 2019Q1

REPORT INFORMATION
  Report Type: Report from Study
  Country: CA (occurrence: CA)
  Receive Date: 20181217
  Receipt Date: 20190125
  Transmission Date: 20190417
  Serious: Yes (Other)
  Sender: FDA-Public Use
  Company Number: CA-ROCHE-2226803

PATIENT
  Age: 57 Year
  Sex: Male

DRUGS (21)
  1. RITUXAN [Suspect]
     Active Substance: RITUXIMAB
     Indication: SCLERODERMA
     Dosage: DAY 1, 15
     Route: 042
     Dates: start: 20180604
  2. DEXILANT [Concomitant]
     Active Substance: DEXLANSOPRAZOLE
     Route: 065
  3. METHYLPREDNISOLONE. [Concomitant]
     Active Substance: METHYLPREDNISOLONE
     Indication: PREMEDICATION
     Route: 042
     Dates: start: 20180604
  4. DIPHENHYDRAMINE HCL [Concomitant]
     Active Substance: DIPHENHYDRAMINE HYDROCHLORIDE
     Indication: PREMEDICATION
     Route: 048
     Dates: start: 20180604
  5. ACETAMINOPHEN. [Concomitant]
     Active Substance: ACETAMINOPHEN
     Indication: PREMEDICATION
     Route: 048
     Dates: start: 20180604
  6. MAXERAN [Concomitant]
     Active Substance: METOCLOPRAMIDE HYDROCHLORIDE
     Route: 065
  7. SUCRALFATE. [Concomitant]
     Active Substance: SUCRALFATE
     Dosage: AS REQUIRED
     Route: 065
  8. RISEDRONATE [Concomitant]
     Active Substance: RISEDRONATE SODIUM
     Route: 065
  9. CELLCEPT [Suspect]
     Active Substance: MYCOPHENOLATE MOFETIL\MYCOPHENOLATE MOFETIL HYDROCHLORIDE
     Indication: INTERSTITIAL LUNG DISEASE
  10. DIFLUCAN [Concomitant]
     Active Substance: FLUCONAZOLE
     Route: 065
  11. PROZAC [Concomitant]
     Active Substance: FLUOXETINE HYDROCHLORIDE
     Route: 065
  12. CELLCEPT [Suspect]
     Active Substance: MYCOPHENOLATE MOFETIL\MYCOPHENOLATE MOFETIL HYDROCHLORIDE
     Indication: SCLERODERMA
     Route: 065
     Dates: start: 201503, end: 201805
  13. DOMPERIDONE [Concomitant]
     Active Substance: DOMPERIDONE
     Route: 065
  14. RITUXAN [Suspect]
     Active Substance: RITUXIMAB
     Indication: INTERSTITIAL LUNG DISEASE
     Route: 042
     Dates: start: 201305
  15. NIFEDIPINE. [Concomitant]
     Active Substance: NIFEDIPINE
     Dosage: XL
     Route: 065
  16. SEPTRA [Concomitant]
     Active Substance: SULFAMETHOXAZOLE\TRIMETHOPRIM
     Dosage: Q. MONDAY, WEDNESDAY, FRIDAY
     Route: 065
  17. NASONEX [Concomitant]
     Active Substance: MOMETASONE FUROATE
     Dosage: 2 SPRAYS INTO EACH NOSTRIL B.I.D. P.R.N.
     Route: 065
  18. PREDNISONE. [Concomitant]
     Active Substance: PREDNISONE
     Route: 065
     Dates: start: 201201
  19. ASPIRIN. [Concomitant]
     Active Substance: ASPIRIN
     Route: 065
  20. PENTOXIFYLLINE. [Concomitant]
     Active Substance: PENTOXIFYLLINE
     Route: 065
  21. CYCLOPHOSPHAMIDE. [Concomitant]
     Active Substance: CYCLOPHOSPHAMIDE
     Route: 048
     Dates: start: 201201, end: 201206

REACTIONS (21)
  - Pulmonary function test decreased [Unknown]
  - Raynaud^s phenomenon [Not Recovered/Not Resolved]
  - Pneumonia [Not Recovered/Not Resolved]
  - Bronchiectasis [Unknown]
  - Sputum discoloured [Unknown]
  - Rales [Not Recovered/Not Resolved]
  - Oxygen saturation decreased [Unknown]
  - Oesophageal dilatation [Unknown]
  - Dyspnoea [Not Recovered/Not Resolved]
  - Disease progression [Unknown]
  - Skin ulcer [Not Recovered/Not Resolved]
  - Osteoporosis [Unknown]
  - Diastolic dysfunction [Unknown]
  - Treatment failure [Unknown]
  - Localised infection [Not Recovered/Not Resolved]
  - Cough [Not Recovered/Not Resolved]
  - Gastrooesophageal reflux disease [Unknown]
  - Haematuria [Unknown]
  - Pneumonitis [Not Recovered/Not Resolved]
  - Oral candidiasis [Not Recovered/Not Resolved]
  - Musculoskeletal chest pain [Unknown]

NARRATIVE: CASE EVENT DATE: 20181106
